FAERS Safety Report 11088352 (Version 3)
Quarter: 2015Q3

REPORT INFORMATION
  Report Type: Spontaneous
  Country: US (occurrence: US)
  Receive Date: 20150504
  Receipt Date: 20150901
  Transmission Date: 20151125
  Serious: Yes (Hospitalization, Other)
  Sender: FDA-Public Use
  Company Number: US-ARIAD-2015US004811

PATIENT
  Age: 60 Year
  Sex: Male

DRUGS (4)
  1. ICLUSIG [Suspect]
     Active Substance: PONATINIB
     Indication: ACUTE LYMPHOCYTIC LEUKAEMIA
     Dosage: 45 MG, QD
     Route: 048
     Dates: start: 20150330
  2. ICLUSIG [Suspect]
     Active Substance: PONATINIB
     Dosage: 45 MG, QD
     Route: 048
     Dates: start: 20150327
  3. ICLUSIG [Suspect]
     Active Substance: PONATINIB
     Dosage: 45 MG, QD
     Route: 048
  4. POSACONAZOLE [Suspect]
     Active Substance: POSACONAZOLE
     Indication: PRODUCT USED FOR UNKNOWN INDICATION

REACTIONS (18)
  - Rash [Recovered/Resolved]
  - Folliculitis [Unknown]
  - Oedema [Recovered/Resolved]
  - Ventricular hypokinesia [Unknown]
  - Cytopenia [Unknown]
  - Dyspnoea [Unknown]
  - Fibrous histiocytoma [Unknown]
  - Headache [Recovered/Resolved]
  - Herpes zoster [Unknown]
  - Ankle fracture [Unknown]
  - Haemorrhage [Unknown]
  - Acute lymphocytic leukaemia recurrent [Unknown]
  - Cellulitis [Recovered/Resolved]
  - Ejection fraction decreased [Unknown]
  - Complex regional pain syndrome [Unknown]
  - Skin papilloma [Not Recovered/Not Resolved]
  - Chest pain [Unknown]
  - Drug ineffective [Unknown]

NARRATIVE: CASE EVENT DATE: 20150408
